FAERS Safety Report 6209054-3 (Version None)
Quarter: 2009Q2

REPORT INFORMATION
  Report Type: 
  Country: None (occurrence: None)
  Receive Date: 20090529
  Receipt Date: 20090519
  Transmission Date: 20091009
  Serious: Yes (Other)
  Sender: FDA-Public Use
  Company Number: PHHY2009US20326

PATIENT
  Age: 63 Year
  Sex: Male

DRUGS (2)
  1. ZOLEDRONIC ACID [Suspect]
     Indication: METASTASES TO BONE
     Route: 042
  2. CHEMOTHERAPEUTICS NOS [Concomitant]

REACTIONS (13)
  - ALVEOLAR OSTEITIS [None]
  - BONE DISORDER [None]
  - BUCCAL MUCOSAL ROUGHENING [None]
  - IMPAIRED HEALING [None]
  - INFECTION [None]
  - LOOSE TOOTH [None]
  - OSTEONECROSIS [None]
  - PAIN IN JAW [None]
  - PURULENT DISCHARGE [None]
  - RESORPTION BONE INCREASED [None]
  - SWELLING [None]
  - TOOTH EXTRACTION [None]
  - TOOTH LOSS [None]
